FAERS Safety Report 7914882-X (Version None)
Quarter: 2011Q4

REPORT INFORMATION
  Report Type: 
  Country: None (occurrence: None)
  Receive Date: 20111115
  Receipt Date: 20111107
  Transmission Date: 20120403
  Serious: Yes (Hospitalization)
  Sender: FDA-Public Use
  Company Number: US-ROCHE-1011192

PATIENT

DRUGS (4)
  1. CARBOPLATIN [Suspect]
     Indication: TRANSITIONAL CELL CARCINOMA
     Dosage: 3.75 AUC OVER 15 BMINS ON DAY 1 EVERY 21 DAYS
     Route: 042
     Dates: start: 20010202
  2. HERCEPTIN [Suspect]
     Indication: TRANSITIONAL CELL CARCINOMA
     Dosage: OVER 30 MINS ON DAYS 1,8,15 EVERY 21 DAYS.FIRST DOSE OF CYCLE1 IS 4 MG/KG.
     Route: 042
     Dates: start: 20010202
  3. GEMCITABINE HYDROCHLORIDE [Suspect]
     Indication: TRANSITIONAL CELL CARCINOMA
     Dosage: OVER 30 MINS ON DAYS 1 AND 8,EVERY 21 DAYS.
     Route: 042
     Dates: start: 20010202
  4. PACLITAXEL [Suspect]
     Indication: TRANSITIONAL CELL CARCINOMA
     Dosage: OVER 3 HOURS ON DAY1, EVERY 21 DAYS.
     Route: 042
     Dates: start: 20010202

REACTIONS (2)
  - LEFT VENTRICULAR DYSFUNCTION [None]
  - MYOCARDIAL INFARCTION [None]
